FAERS Safety Report 5691606-0 (Version None)
Quarter: 2008Q2

REPORT INFORMATION
  Report Type: 
  Country: None (occurrence: None)
  Receive Date: 20080402
  Receipt Date: 20050429
  Transmission Date: 20081010
  Serious: Yes (Death)
  Sender: FDA-Public Use
  Company Number: US-ROCHE-403624

PATIENT

DRUGS (1)
  1. FUZEON [Suspect]
     Indication: HIV INFECTION
     Route: 065

REACTIONS (1)
  - DEATH [None]
